FAERS Safety Report 5935400-1 (Version None)
Quarter: 2008Q4

REPORT INFORMATION
  Report Type: 
  Country: None (occurrence: None)
  Receive Date: 20081030
  Receipt Date: 20081023
  Transmission Date: 20090506
  Serious: Yes (Hospitalization)
  Sender: FDA-Public Use
  Company Number: JP-ABBOTT-07P-087-0415176-00

PATIENT
  Age: 78 Year
  Sex: Male

DRUGS (9)
  1. LEUPROLIDE ACETATE [Suspect]
     Indication: PROSTATE CANCER STAGE II
     Route: 058
     Dates: start: 20060627
  2. LEUPROLIDE ACETATE [Suspect]
  3. LEUPROLIDE ACETATE [Suspect]
  4. BICALUTAMIDE [Concomitant]
     Indication: PROSTATE CANCER STAGE II
     Route: 048
     Dates: start: 20060613, end: 20061212
  5. DILTIAZEM HYDROCHLORIDE [Concomitant]
     Indication: HYPERTENSION
  6. DIPYRIDAMOLE [Concomitant]
     Indication: DRUG USE FOR UNKNOWN INDICATION
     Route: 048
  7. ALOSENN [Concomitant]
     Indication: CONSTIPATION
     Route: 048
  8. ALLOPURINOL [Concomitant]
     Indication: GOUT
     Route: 048
  9. SEVELAMER HYDROCHLORIDE [Concomitant]
     Indication: DRUG USE FOR UNKNOWN INDICATION
     Route: 048

REACTIONS (1)
  - SUBDURAL HAEMATOMA [None]
